FAERS Safety Report 13516995 (Version 1)
Quarter: 2017Q2

REPORT INFORMATION
  Report Type: Spontaneous
  Country: US (occurrence: US)
  Receive Date: 20170504
  Receipt Date: 20170504
  Transmission Date: 20170830
  Serious: Yes (Other)
  Sender: FDA-Public Use
  Company Number: None

PATIENT
  Age: 60 Year
  Sex: Female

DRUGS (1)
  1. IBRANCE [Suspect]
     Active Substance: PALBOCICLIB
     Indication: BREAST CANCER FEMALE
     Dosage: DAILY, 21 DAYS OF 28 DAY CYCLE
     Route: 048
     Dates: start: 20170127, end: 20170503

REACTIONS (3)
  - Depression [None]
  - Crying [None]
  - Fall [None]

NARRATIVE: CASE EVENT DATE: 20170503
